FAERS Safety Report 24233194 (Version 2)
Quarter: 2024Q3

REPORT INFORMATION
  Report Type: Spontaneous
  Country: CN (occurrence: CN)
  Receive Date: 20240821
  Receipt Date: 20240828
  Transmission Date: 20241017
  Serious: Yes (Hospitalization, Other)
  Sender: TERSERA THERAPEUTICS
  Company Number: CN-AstraZeneca-2024A162177

PATIENT

DRUGS (2)
  1. GOSERELIN [Suspect]
     Active Substance: GOSERELIN
     Indication: Product used for unknown indication
     Dosage: 1 DOSAGE FORM, MONTHLY
     Route: 058
  2. ZOLADEX [Suspect]
     Active Substance: GOSERELIN ACETATE
     Indication: Product used for unknown indication
     Dosage: UNK
     Route: 065

REACTIONS (14)
  - Intervertebral disc protrusion [Recovering/Resolving]
  - Cerebral infarction [Recovering/Resolving]
  - Poor quality sleep [Unknown]
  - Gait disturbance [Unknown]
  - Ill-defined disorder [Recovering/Resolving]
  - Drug resistance [Recovering/Resolving]
  - Vertigo [Unknown]
  - Constipation [Unknown]
  - Abdominal distension [Unknown]
  - Dyspepsia [Unknown]
  - Dizziness [Unknown]
  - Pain [Unknown]
  - Peripheral swelling [Unknown]
  - Oedema peripheral [Recovering/Resolving]
